FAERS Safety Report 18283393 (Version 4)
Quarter: 2020Q4

REPORT INFORMATION
  Report Type: Spontaneous
  Country: US (occurrence: US)
  Receive Date: 20200918
  Receipt Date: 20201029
  Transmission Date: 20210113
  Serious: Yes (Other)
  Sender: FDA-Public Use
  Company Number: US-BAYER-2020-196668

PATIENT
  Age: 62 Year
  Sex: Female

DRUGS (1)
  1. EOVIST [Suspect]
     Active Substance: GADOXETATE DISODIUM
     Dosage: UNK
     Dates: start: 20200904

REACTIONS (3)
  - Erythema [Recovered/Resolved]
  - Pruritus [Recovered/Resolved]
  - Contrast media reaction [Unknown]

NARRATIVE: CASE EVENT DATE: 20200904
